FAERS Safety Report 5396733-3 (Version None)
Quarter: 2007Q3

REPORT INFORMATION
  Report Type: 
  Country: None (occurrence: None)
  Receive Date: 20070725
  Receipt Date: 20070720
  Transmission Date: 20080115
  Serious: Yes (Hospitalization)
  Sender: FDA-Public Use
  Company Number: DE-AVENTIS-200711615DE

PATIENT
  Age: 66 Year
  Sex: Female
  Weight: 75 kg

DRUGS (6)
  1. TAXOTERE [Suspect]
     Route: 041
     Dates: start: 20060726, end: 20060726
  2. DOXORUBICIN HCL [Suspect]
     Route: 042
     Dates: start: 20060726, end: 20060726
  3. CYCLOPHOSPHAMIDE [Suspect]
     Dates: start: 20060726, end: 20060726
  4. FORTECORTIN                        /00016001/ [Concomitant]
     Indication: ANTIEMETIC SUPPORTIVE CARE
     Route: 048
     Dates: start: 20060723, end: 20060725
  5. TAVEGIL                            /00137201/ [Concomitant]
     Indication: ALLERGY PROPHYLAXIS
     Route: 042
     Dates: start: 20060726, end: 20060726
  6. SOSTRIL                            /00550802/ [Concomitant]
     Indication: GASTRITIS PROPHYLAXIS
     Dates: start: 20060726, end: 20060726

REACTIONS (2)
  - ALOPECIA [None]
  - DEPRESSION [None]
